FAERS Safety Report 4554693-9 (Version None)
Quarter: 2005Q1

REPORT INFORMATION
  Report Type: 
  Country: None (occurrence: None)
  Receive Date: 20050118
  Receipt Date: 20050104
  Transmission Date: 20050727
  Serious: Yes (Death, Hospitalization)
  Sender: FDA-Public Use
  Company Number: AT-JNJFOC-20041206832

PATIENT
  Age: 60 Year
  Sex: Female

DRUGS (4)
  1. CAELYX [Suspect]
     Indication: BREAST CANCER
     Route: 042
  2. PAROXETINE HCL [Concomitant]
     Indication: DEPRESSION
     Route: 049
  3. FUROSEMIDE [Concomitant]
     Indication: DIURETIC THERAPY
     Route: 049
  4. DURAGESIC [Concomitant]
     Indication: PAIN
     Dosage: QOD
     Route: 062

REACTIONS (2)
  - CONGESTIVE CARDIOMYOPATHY [None]
  - DEATH [None]
